FAERS Safety Report 4941031-2 (Version None)
Quarter: 2006Q1

REPORT INFORMATION
  Report Type: 
  Country: None (occurrence: None)
  Receive Date: 20060313
  Receipt Date: 20050720
  Transmission Date: 20060701
  Serious: Yes (Hospitalization, Other)
  Sender: FDA-Public Use
  Company Number: 2005GB01420

PATIENT
  Age: 461 Month
  Sex: Male
  Weight: 60.4 kg

DRUGS (14)
  1. GEFITINIB [Suspect]
     Indication: NON-SMALL CELL LUNG CANCER
     Route: 048
     Dates: start: 20040109, end: 20050806
  2. GABAPENTIN [Concomitant]
     Indication: ANALGESIC EFFECT
  3. ACETAMINOPHEN [Concomitant]
     Indication: ANALGESIC EFFECT
  4. CARBAMAZEPINE [Concomitant]
     Indication: ANALGESIC EFFECT
  5. VENLAFAXINE HCL [Concomitant]
     Indication: DEPRESSION
  6. CLONAZEPAM [Concomitant]
     Indication: INSOMNIA
  7. HALOPERIDOL [Concomitant]
  8. BUSCOPAN [Concomitant]
     Indication: PAIN
  9. BUSCOPAN [Concomitant]
     Indication: MUSCLE SPASMS
  10. ORAMORPH SR [Concomitant]
     Indication: PAIN
  11. ORAMORPH SR [Concomitant]
     Indication: MUSCLE SPASMS
  12. LANSOPRAZOLE [Concomitant]
     Indication: PANCREATIC INSUFFICIENCY
  13. LANSOPRAZOLE [Concomitant]
     Indication: ANTACID THERAPY
  14. CREON [Concomitant]
     Indication: PANCREATIC INSUFFICIENCY

REACTIONS (13)
  - ANAEMIA [None]
  - DIARRHOEA [None]
  - INTESTINAL OBSTRUCTION [None]
  - LIVER FUNCTION TEST ABNORMAL [None]
  - MALIGNANT NEOPLASM PROGRESSION [None]
  - NON-SMALL CELL LUNG CANCER [None]
  - ORAL INTAKE REDUCED [None]
  - OVERGROWTH BACTERIAL [None]
  - PAIN [None]
  - PANCREATIC INSUFFICIENCY [None]
  - RENAL FAILURE [None]
  - SOMNOLENCE [None]
  - WEIGHT DECREASED [None]
